FAERS Safety Report 22108915 (Version 1)
Quarter: 2023Q1

REPORT INFORMATION
  Report Type: Spontaneous
  Country: DE (occurrence: DE)
  Receive Date: 20230317
  Receipt Date: 20230317
  Transmission Date: 20230418
  Serious: Yes (Hospitalization)
  Sender: FDA-Public Use
  Company Number: DE-ROCHE-3297347

PATIENT
  Age: 79 Year
  Sex: Male
  Weight: 80 kg

DRUGS (3)
  1. LEUCOVORIN CALCIUM [Suspect]
     Active Substance: LEUCOVORIN CALCIUM
     Indication: Neoplasm
     Dosage: UNK, Q2W, (ON 04 JAN 2022, RECEIVED MOST RECENT DOSE OF CALCIUM FOLINATE PRIOR TO AE WAS 740 MG. ON
     Route: 042
     Dates: start: 20210906
  2. OXALIPLATIN [Suspect]
     Active Substance: OXALIPLATIN
     Indication: Neoplasm
     Dosage: UNK, Q2W, (ON 04/JAN/2022, RECEIVED MOST RECENT DOSE OF OXALIPLATIN PRIOR TO AE WAS 111 MG.ON 16/MAR
     Route: 042
     Dates: start: 20210906
  3. FLUOROURACIL [Suspect]
     Active Substance: FLUOROURACIL
     Indication: Neoplasm
     Dosage: UNK, Q2W, (ON 04 JAN 2022, RECEIVED MOST RECENT DOSE OF 5-FLUOROURACIL PRIOR TO AE WAS 3330 MG.ON 16
     Route: 042
     Dates: start: 20210906

REACTIONS (2)
  - Bone contusion [Recovered/Resolved]
  - Platelet count decreased [Recovered/Resolved]

NARRATIVE: CASE EVENT DATE: 20220201
